FAERS Safety Report 8407175-8 (Version None)
Quarter: 2012Q2

REPORT INFORMATION
  Report Type: 
  Country: None (occurrence: None)
  Receive Date: 20120604
  Receipt Date: 20120524
  Transmission Date: 20120825
  Serious: Yes (Other)
  Sender: FDA-Public Use
  Company Number: GB-AMGEN-GBRCT2012026629

PATIENT
  Age: 16 Year
  Sex: Male
  Weight: 46.1 kg

DRUGS (5)
  1. FOLIC ACID [Concomitant]
     Dosage: 5 MG, WEEKLY
     Route: 048
     Dates: start: 20111201
  2. ETANERCEPT [Suspect]
     Indication: PRODUCT USED FOR UNKNOWN INDICATION
     Dosage: 17.5 MG, 2 TIMES/WK
     Route: 058
     Dates: start: 20120131
  3. NAPROXEN [Concomitant]
     Dosage: 250 MG, 3X/DAY
     Route: 048
     Dates: start: 20120131
  4. METHOTREXATE [Concomitant]
     Dosage: 20 MG, WEEKLY
     Route: 048
     Dates: start: 20111001
  5. IBUPROFEN [Concomitant]
     Dosage: 400 MG, AS NEEDED
     Route: 048
     Dates: start: 20120101

REACTIONS (1)
  - HEADACHE [None]
